FAERS Safety Report 17106622 (Version 2)
Quarter: 2019Q4

REPORT INFORMATION
  Report Type: Spontaneous
  Country: FR (occurrence: FR)
  Receive Date: 20191203
  Receipt Date: 20191209
  Transmission Date: 20200122
  Serious: Yes (Other)
  Sender: FDA-Public Use
  Company Number: FR-MYLANLABS-2019M1116377

PATIENT
  Age: 67 Year
  Sex: Male

DRUGS (10)
  1. DOLIPRANE [Concomitant]
     Active Substance: ACETAMINOPHEN
     Indication: PAIN
     Dosage: 500 DOSAGE FORM, PRN, 6 G?LULES/ JOUR ? LA DEMANDE
     Route: 048
  2. DESLORATADINE MYLAN 5 MG, COMPRIM? PELLICUL? [Suspect]
     Active Substance: DESLORATADINE
     Indication: RHINITIS
     Dosage: 5 MILLIGRAM, PRN
     Route: 048
     Dates: start: 20190426, end: 20190510
  3. HAVLANE [Concomitant]
     Active Substance: LOPRAZOLAM
     Indication: SLEEP DISORDER
     Dosage: 0-0-1
     Route: 048
  4. RIFADINE                           /00146901/ [Suspect]
     Active Substance: RIFAMPIN
     Indication: EPIDIDYMITIS
     Dosage: 1200 MILLIGRAM, QD, 0-2-0-2
     Route: 048
     Dates: start: 20190405
  5. LEVOFLOXACINE ARROW [Suspect]
     Active Substance: LEVOFLOXACIN
     Indication: EPIDIDYMITIS
     Dosage: 1000 MILLIGRAM, QD
     Route: 048
     Dates: start: 20190405, end: 20190503
  6. ALGINATE DE SODIUM/BICARBONATE DE SODIUM MYLAN [Suspect]
     Active Substance: SODIUM ALGINATE\SODIUM BICARBONATE
     Indication: GASTROOESOPHAGEAL REFLUX DISEASE
     Dosage: SI BESOIN (MAX4/JOUR)
     Route: 048
     Dates: start: 20190406
  7. CONTRAMAL [Suspect]
     Active Substance: TRAMADOL HYDROCHLORIDE
     Indication: PAIN
     Dosage: 200 MILLIGRAM, QD,1-0-1
     Route: 048
     Dates: start: 20190410
  8. LOVENOX [Suspect]
     Active Substance: ENOXAPARIN SODIUM
     Indication: THROMBOSIS PROPHYLAXIS
     Dosage: 4000 INTERNATIONAL UNIT, QD
     Route: 058
     Dates: start: 20190405
  9. LANSOPRAZOLE MYLAN 15 MG, COMPRIM? ORODISPERSIBLE [Suspect]
     Active Substance: LANSOPRAZOLE
     Indication: PROPHYLAXIS AGAINST GASTROINTESTINAL ULCER
     Dosage: 15 MILLIGRAM, QD, 0-1-0
     Route: 048
     Dates: start: 20190410
  10. CONTRAMAL [Suspect]
     Active Substance: TRAMADOL HYDROCHLORIDE
     Dosage: 100 MILLIGRAM, QD, 1-0-1
     Route: 048
     Dates: start: 20190410

REACTIONS (1)
  - Rotator cuff syndrome [Recovering/Resolving]

NARRATIVE: CASE EVENT DATE: 20190503
